FAERS Safety Report 15058950 (Version 1)
Quarter: 2018Q2

REPORT INFORMATION
  Report Type: Report from Study
  Country: CA (occurrence: CA)
  Receive Date: 20180625
  Receipt Date: 20180625
  Transmission Date: 20180711
  Serious: Yes (Hospitalization)
  Sender: FDA-Public Use
  Company Number: CA-BEH-2018091980

PATIENT
  Sex: Male

DRUGS (13)
  1. MARIJUANA [Concomitant]
     Active Substance: CANNABIS SATIVA SUBSP. INDICA TOP
  2. VENTOLIN [Concomitant]
     Active Substance: ALBUTEROL SULFATE
  3. NORVASC [Concomitant]
     Active Substance: AMLODIPINE BESYLATE
  4. PANTOLOC                           /01263204/ [Concomitant]
     Active Substance: PANTOPRAZOLE SODIUM
  5. SYMBICORT [Concomitant]
     Active Substance: BUDESONIDE\FORMOTEROL FUMARATE DIHYDRATE
  6. DANAZOL. [Concomitant]
     Active Substance: DANAZOL
  7. REACTINE                           /00884302/ [Concomitant]
     Active Substance: CETIRIZINE HYDROCHLORIDE
  8. SINGULAIR [Concomitant]
     Active Substance: MONTELUKAST SODIUM
  9. TRAMACET [Concomitant]
     Active Substance: ACETAMINOPHEN\TRAMADOL
  10. NASONEX [Concomitant]
     Active Substance: MOMETASONE FUROATE
  11. DEXEDRINE [Concomitant]
     Active Substance: DEXTROAMPHETAMINE SULFATE
  12. BERINERT [Suspect]
     Active Substance: HUMAN C1-ESTERASE INHIBITOR
     Indication: HEREDITARY ANGIOEDEMA WITH NORMAL C1 ESTERASE INHIBITOR
     Dosage: 9000 IU (3X3000 IU), UNK
     Route: 058
     Dates: start: 20160916
  13. BERINERT [Suspect]
     Active Substance: HUMAN C1-ESTERASE INHIBITOR
     Indication: PROPHYLAXIS

REACTIONS (1)
  - Intestinal obstruction [Not Recovered/Not Resolved]
